FAERS Safety Report 21916558 (Version 1)
Quarter: 2023Q1

REPORT INFORMATION
  Report Type: Report from Study
  Country: CA (occurrence: CA)
  Receive Date: 20230126
  Receipt Date: 20230126
  Transmission Date: 20230417
  Serious: Yes (Other)
  Sender: FDA-Public Use
  Company Number: CA-GILEAD-2022-0599293

PATIENT
  Age: 65 Year
  Sex: Female

DRUGS (6)
  1. SACITUZUMAB GOVITECAN-HZIY [Suspect]
     Active Substance: SACITUZUMAB GOVITECAN-HZIY
     Indication: Triple negative breast cancer
     Dosage: 630 MG
     Route: 042
     Dates: start: 20220912
  2. SACITUZUMAB GOVITECAN-HZIY [Suspect]
     Active Substance: SACITUZUMAB GOVITECAN-HZIY
     Dosage: 600 MG
     Route: 042
     Dates: end: 20230105
  3. TAXOL [Concomitant]
     Active Substance: PACLITAXEL
  4. GEMZAR [Concomitant]
     Active Substance: GEMCITABINE HYDROCHLORIDE
  5. CARBOPLATIN [Concomitant]
     Active Substance: CARBOPLATIN
  6. KEYTRUDA [Concomitant]
     Active Substance: PEMBROLIZUMAB

REACTIONS (3)
  - Disease progression [Unknown]
  - Inappropriate schedule of product administration [Unknown]
  - Weight decreased [Unknown]

NARRATIVE: CASE EVENT DATE: 20221206
